FAERS Safety Report 12571299 (Version 1)
Quarter: 2016Q3

REPORT INFORMATION
  Report Type: Spontaneous
  Country: US (occurrence: US)
  Receive Date: 20160719
  Receipt Date: 20160719
  Transmission Date: 20161109
  Serious: Yes (Hospitalization)
  Sender: FDA-Public Use
  Company Number: US-BAYER-2016-140187

PATIENT
  Sex: Male

DRUGS (2)
  1. ALEVE [Suspect]
     Active Substance: NAPROXEN SODIUM
     Dosage: 1 DF, QD
  2. BAYER ASPIRIN REGIMEN REGULAR 325 MG STRENGTH [Interacting]
     Active Substance: ASPIRIN
     Dosage: UNK

REACTIONS (4)
  - Product use issue [None]
  - Drug administration error [None]
  - Internal haemorrhage [Recovered/Resolved]
  - Labelled drug-drug interaction medication error [None]

NARRATIVE: CASE EVENT DATE: 2009
